FAERS Safety Report 6106356-6 (Version None)
Quarter: 2009Q1

REPORT INFORMATION
  Report Type: 
  Country: None (occurrence: None)
  Receive Date: 20090306
  Receipt Date: 20090204
  Transmission Date: 20090719
  Serious: No
  Sender: FDA-Public Use
  Company Number: US-B.I. PHARMACEUTICALS,INC./RIDGEFIELD-2009-BP-01433BP

PATIENT
  Age: 68 Year
  Sex: Male

DRUGS (2)
  1. FLOMAX [Suspect]
     Indication: URINARY TRACT DISORDER
     Dosage: .4MG
     Route: 048
     Dates: start: 20080601, end: 20080801
  2. FLOMAX [Suspect]
     Dosage: .4MG
     Route: 048
     Dates: start: 20081201, end: 20081201

REACTIONS (2)
  - CONSTIPATION [None]
  - DRUG INEFFECTIVE [None]
